FAERS Safety Report 12775519 (Version 2)
Quarter: 2016Q4

REPORT INFORMATION
  Report Type: Spontaneous
  Country: BR (occurrence: BR)
  Receive Date: 20160923
  Receipt Date: 20161024
  Transmission Date: 20170207
  Serious: Yes (Other)
  Sender: FDA-Public Use
  Company Number: PHHY2016BR130603

PATIENT
  Age: 38 Year
  Sex: Female
  Weight: 50 kg

DRUGS (4)
  1. PANTOPRAZOLE SODIUM. [Suspect]
     Active Substance: PANTOPRAZOLE SODIUM
     Indication: ABDOMINAL PAIN UPPER
     Dosage: 20 MG, Q12H
     Route: 048
     Dates: start: 20160414, end: 20160922
  2. NISTATIN [Concomitant]
     Active Substance: NYSTATIN
     Indication: PRODUCT USED FOR UNKNOWN INDICATION
     Route: 065
  3. DICLOFENAC [Concomitant]
     Active Substance: DICLOFENAC
     Indication: PHARYNGEAL OEDEMA
     Dosage: 1 DF, Q8H
     Route: 065
  4. HEXOMEDINE [Concomitant]
     Active Substance: HEXAMIDINE DIISETHIONATE
     Indication: PRODUCT USED FOR UNKNOWN INDICATION
     Route: 065

REACTIONS (12)
  - Pharyngeal oedema [Recovering/Resolving]
  - Abdominal pain [Recovering/Resolving]
  - Swelling [Recovering/Resolving]
  - Pruritus [Recovering/Resolving]
  - Malaise [Recovering/Resolving]
  - Discomfort [Recovering/Resolving]
  - Dizziness [Recovering/Resolving]
  - Hypersensitivity [Recovering/Resolving]
  - Somnolence [Recovering/Resolving]
  - Asthenia [Recovering/Resolving]
  - Constipation [Recovering/Resolving]
  - Dry mouth [Recovering/Resolving]

NARRATIVE: CASE EVENT DATE: 20160916
